FAERS Safety Report 11267555 (Version 1)
Quarter: 2015Q3

REPORT INFORMATION
  Report Type: Spontaneous
  Country: US (occurrence: US)
  Receive Date: 20150713
  Receipt Date: 20150713
  Transmission Date: 20151125
  Serious: No
  Sender: FDA-Public Use
  Company Number: US-TAKEDA-2013MPI000145

PATIENT
  Age: 53 Year
  Sex: Male
  Weight: 75.28 kg

DRUGS (5)
  1. DECADRON [Concomitant]
     Active Substance: DEXAMETHASONE
     Indication: PRODUCT USED FOR UNKNOWN INDICATION
     Dosage: 20 MG, UNK
  2. ATIVAN [Concomitant]
     Active Substance: LORAZEPAM
     Indication: PRODUCT USED FOR UNKNOWN INDICATION
     Dosage: 0.5 MG, UNK
  3. ZOFRAN [Concomitant]
     Active Substance: ONDANSETRON HYDROCHLORIDE
     Indication: PRODUCT USED FOR UNKNOWN INDICATION
     Dosage: 16 MG, UNK
  4. VELCADE [Suspect]
     Active Substance: BORTEZOMIB
     Indication: PLASMA CELL MYELOMA
     Dosage: 3 MG, UNK
     Route: 058
  5. ZOMETA [Concomitant]
     Active Substance: ZOLEDRONIC ACID
     Indication: PRODUCT USED FOR UNKNOWN INDICATION
     Dosage: 4 MG, UNK

REACTIONS (26)
  - Arthropathy [Unknown]
  - Fine motor skill dysfunction [Unknown]
  - Hypoaesthesia [Unknown]
  - Hypoaesthesia [Unknown]
  - Muscular weakness [Unknown]
  - Back pain [Unknown]
  - Arthralgia [Unknown]
  - Decreased appetite [Unknown]
  - Arthralgia [Unknown]
  - Decreased appetite [Unknown]
  - Pain in extremity [Unknown]
  - Bone disorder [Unknown]
  - Diarrhoea [Unknown]
  - Gait disturbance [Unknown]
  - Back pain [Unknown]
  - Constipation [Unknown]
  - Diarrhoea [Unknown]
  - Bone disorder [Unknown]
  - Walking aid user [Unknown]
  - Gait disturbance [Unknown]
  - Paraesthesia [Unknown]
  - Arthropathy [Unknown]
  - Nausea [Unknown]
  - Gastrooesophageal reflux disease [Unknown]
  - Dysgeusia [Unknown]
  - Paraesthesia [Unknown]

NARRATIVE: CASE EVENT DATE: 20130514
